FAERS Safety Report 26076462 (Version 1)
Quarter: 2025Q4

REPORT INFORMATION
  Report Type: Spontaneous
  Country: CN (occurrence: CN)
  Receive Date: 20251121
  Receipt Date: 20251121
  Transmission Date: 20260117
  Serious: Yes (Other)
  Sender: PFIZER
  Company Number: CN-PFIZER INC-PV202500135734

PATIENT
  Age: 27 Year
  Sex: Female

DRUGS (3)
  1. METHOTREXATE SODIUM [Suspect]
     Active Substance: METHOTREXATE SODIUM
     Indication: Acute lymphocytic leukaemia
     Dosage: 500 MG, 1X/DAY
     Route: 041
     Dates: start: 20250726, end: 20250726
  2. METHOTREXATE SODIUM [Suspect]
     Active Substance: METHOTREXATE SODIUM
     Dosage: 2000 MG, 1X/DAY
     Route: 041
     Dates: start: 20250726, end: 20250726
  3. METHOTREXATE SODIUM [Suspect]
     Active Substance: METHOTREXATE SODIUM
     Dosage: 2500 MG, 1X/DAY
     Route: 041
     Dates: start: 20250726, end: 20250726

REACTIONS (10)
  - Nausea [Recovering/Resolving]
  - Vomiting [Recovering/Resolving]
  - Gastrointestinal haemorrhage [Recovering/Resolving]
  - Gastrointestinal mucosal disorder [Recovering/Resolving]
  - Gastrointestinal infection [Recovering/Resolving]
  - White blood cell count increased [Recovering/Resolving]
  - Neutrophil percentage increased [Recovering/Resolving]
  - Red blood cell count decreased [Recovering/Resolving]
  - Haemoglobin decreased [Recovering/Resolving]
  - Faecal occult blood positive [Recovering/Resolving]

NARRATIVE: CASE EVENT DATE: 20250728
